FAERS Safety Report 14712515 (Version 2)
Quarter: 2018Q2

REPORT INFORMATION
  Report Type: Spontaneous
  Country: AR (occurrence: AR)
  Receive Date: 20180404
  Receipt Date: 20180615
  Transmission Date: 20180711
  Serious: Yes (Other)
  Sender: FDA-Public Use
  Company Number: AR-AMGEN-ARGSP2018045184

PATIENT
  Age: 54 Year
  Sex: Female

DRUGS (1)
  1. ENBREL [Suspect]
     Active Substance: ETANERCEPT
     Indication: PSORIATIC ARTHROPATHY
     Dosage: 50 MG, WEEKLY
     Route: 065
     Dates: start: 20151221, end: 20171117

REACTIONS (5)
  - Hypokinesia [Not Recovered/Not Resolved]
  - Influenza [Not Recovered/Not Resolved]
  - Infection [Not Recovered/Not Resolved]
  - Demyelination [Not Recovered/Not Resolved]
  - Viral infection [Not Recovered/Not Resolved]

NARRATIVE: CASE EVENT DATE: 2017
